FAERS Safety Report 8201969-X (Version None)
Quarter: 2012Q1

REPORT INFORMATION
  Report Type: 
  Country: None (occurrence: None)
  Receive Date: 20120312
  Receipt Date: 20120305
  Transmission Date: 20120608
  Serious: Yes (Hospitalization)
  Sender: FDA-Public Use
  Company Number: PHEH2012US001201

PATIENT
  Sex: Male
  Weight: 73.016 kg

DRUGS (2)
  1. AREDIA [Suspect]
     Dosage: 60 MG, QMO
     Route: 042
     Dates: start: 20111215
  2. AREDIA [Suspect]
     Indication: MULTIPLE MYELOMA
     Dosage: 60 MG, QMO
     Route: 042
     Dates: start: 20100617

REACTIONS (1)
  - ENTEROCOLITIS INFECTIOUS [None]
